FAERS Safety Report 14523403 (Version 1)
Quarter: 2018Q1

REPORT INFORMATION
  Report Type: Report from Study
  Country: CN (occurrence: CN)
  Receive Date: 20180212
  Receipt Date: 20180212
  Transmission Date: 20180509
  Serious: Yes (Other)
  Sender: FDA-Public Use
  Company Number: CN-ELI_LILLY_AND_COMPANY-CN201801014052

PATIENT
  Age: 64 Year
  Sex: Male

DRUGS (7)
  1. CETUXIMAB. [Suspect]
     Active Substance: CETUXIMAB
     Dosage: UNK UNK, 5 VIALS
     Route: 042
     Dates: end: 20171028
  2. CETUXIMAB. [Suspect]
     Active Substance: CETUXIMAB
     Dosage: UNK UNK, 4 VIALS ALL THE TIME AND 3 VIALS FOR TWO TIMES IN THE MIDDLE OF NOV 2017 AND IN DEC 2017
     Route: 042
     Dates: start: 201711
  3. CETUXIMAB. [Suspect]
     Active Substance: CETUXIMAB
     Indication: RECTAL CANCER
     Dosage: UNK UNK, 5 VIALS
     Route: 042
     Dates: end: 20171028
  4. CETUXIMAB. [Suspect]
     Active Substance: CETUXIMAB
     Dosage: UNK UNK, 4 VIALS ALL THE TIME AND 3 VIALS FOR TWO TIMES IN THE MIDDLE OF NOV 2017 AND IN DEC 2017
     Route: 042
     Dates: start: 201711
  5. OXALIPLATIN. [Concomitant]
     Active Substance: OXALIPLATIN
     Indication: RECTAL CANCER
  6. CETUXIMAB. [Suspect]
     Active Substance: CETUXIMAB
     Dosage: UNK UNK, 5 VIALS
     Route: 042
     Dates: end: 20171028
  7. CETUXIMAB. [Suspect]
     Active Substance: CETUXIMAB
     Dosage: UNK UNK, 4 VIALS ALL THE TIME AND 3 VIALS FOR TWO TIMES IN THE MIDDLE OF NOV 2017 AND IN DEC 2017
     Route: 042
     Dates: start: 201711

REACTIONS (7)
  - Eye haemorrhage [Unknown]
  - Mucosal inflammation [Recovering/Resolving]
  - Drug intolerance [Unknown]
  - Epistaxis [Unknown]
  - Dry eye [Unknown]
  - Bone marrow failure [Recovering/Resolving]
  - Rash [Recovering/Resolving]

NARRATIVE: CASE EVENT DATE: 201711
